FAERS Safety Report 6735359-3 (Version None)
Quarter: 2010Q2

REPORT INFORMATION
  Report Type: 
  Country: None (occurrence: None)
  Receive Date: 20100521
  Receipt Date: 20100514
  Transmission Date: 20101027
  Serious: Yes (Other)
  Sender: FDA-Public Use
  Company Number: US-NOVOPROD-308722

PATIENT
  Sex: Male
  Weight: 119.73 kg

DRUGS (1)
  1. VICTOZA [Suspect]
     Indication: TYPE 2 DIABETES MELLITUS
     Dosage: 1.2 MG, QD
     Route: 058
     Dates: start: 20100408, end: 20100514

REACTIONS (7)
  - BLOOD GLUCOSE INCREASED [None]
  - COLD SWEAT [None]
  - CYST [None]
  - DYSPHONIA [None]
  - DYSPNOEA [None]
  - HEARING IMPAIRED [None]
  - SUBCUTANEOUS ABSCESS [None]
